FAERS Safety Report 8325157-1 (Version None)
Quarter: 2012Q2

REPORT INFORMATION
  Report Type: 
  Country: None (occurrence: None)
  Receive Date: 20120501
  Receipt Date: 20100617
  Transmission Date: 20120825
  Serious: No
  Sender: FDA-Public Use
  Company Number: US-TEVA-2010001919

PATIENT
  Sex: Female
  Weight: 64.468 kg

DRUGS (9)
  1. MULTI-VITAMIN [Concomitant]
  2. NUVIGIL [Suspect]
     Indication: FATIGUE
     Dosage: 50 MILLIGRAM;
     Route: 048
     Dates: start: 20100107
  3. NAPROXEN (ALEVE) [Concomitant]
     Indication: PAIN
     Dates: start: 20080101
  4. BETASERON [Concomitant]
     Indication: MULTIPLE SCLEROSIS
     Route: 030
     Dates: start: 20080101
  5. CITALOPRAM [Concomitant]
     Indication: DEPRESSION
     Dosage: 40 MILLIGRAM;
  6. OMEPRAZOLE [Concomitant]
     Dosage: 40 MILLIGRAM;
  7. SPIRIVA [Concomitant]
     Indication: CHRONIC OBSTRUCTIVE PULMONARY DISEASE
     Dates: start: 20100201
  8. NUVIGIL [Suspect]
     Dosage: 150 MILLIGRAM;
     Route: 048
     Dates: start: 20100107
  9. PROAIR HFA [Concomitant]
     Indication: CHRONIC OBSTRUCTIVE PULMONARY DISEASE

REACTIONS (3)
  - DYSPHONIA [None]
  - WEIGHT INCREASED [None]
  - COUGH [None]
